FAERS Safety Report 5384524-9 (Version None)
Quarter: 2007Q3

REPORT INFORMATION
  Report Type: 
  Country: None (occurrence: None)
  Receive Date: 20070711
  Receipt Date: 20070628
  Transmission Date: 20080115
  Serious: Yes (Hospitalization)
  Sender: FDA-Public Use
  Company Number: BR-GENENTECH-243886

PATIENT
  Sex: Male
  Weight: 70 kg

DRUGS (2)
  1. BEVACIZUMAB [Suspect]
     Indication: COLORECTAL CANCER METASTATIC
     Dosage: 352 MG, Q2W
     Route: 042
     Dates: start: 20070201
  2. CHEMOTHERAPY (UNK INGREDIENTS) [Concomitant]
     Indication: COLORECTAL CANCER METASTATIC

REACTIONS (2)
  - ASTHENIA [None]
  - PYREXIA [None]
